FAERS Safety Report 4683448-X (Version None)
Quarter: 2005Q2

REPORT INFORMATION
  Report Type: 
  Country: None (occurrence: None)
  Receive Date: 20050607
  Receipt Date: 20050526
  Transmission Date: 20051028
  Serious: Yes (Other)
  Sender: FDA-Public Use
  Company Number: US-JNJFOC-20050407177

PATIENT
  Age: 37 Year
  Sex: Male

DRUGS (3)
  1. REMICADE [Suspect]
     Route: 042
  2. REMICADE [Suspect]
     Indication: CROHN'S DISEASE
     Route: 042
  3. AZATHIOPRINE [Concomitant]

REACTIONS (2)
  - CROHN'S DISEASE [None]
  - PULMONARY TUBERCULOSIS [None]
